FAERS Safety Report 4782605-1 (Version None)
Quarter: 2005Q3

REPORT INFORMATION
  Report Type: 
  Country: None (occurrence: None)
  Receive Date: 20050929
  Receipt Date: 20050420
  Transmission Date: 20060218
  Serious: No
  Sender: FDA-Public Use
  Company Number: 402908

PATIENT
  Sex: Female

DRUGS (3)
  1. COREG [Suspect]
     Indication: DRUG USE FOR UNKNOWN INDICATION
     Route: 065
     Dates: start: 20050101
  2. TORSEMIDE [Concomitant]
     Route: 065
  3. DYNACIRC CR [Concomitant]
     Route: 065

REACTIONS (4)
  - BLOOD PRESSURE DECREASED [None]
  - DYSPNOEA [None]
  - HEADACHE [None]
  - OEDEMA PERIPHERAL [None]
